FAERS Safety Report 15133988 (Version 1)
Quarter: 2018Q3

REPORT INFORMATION
  Report Type: Spontaneous
  Country: DK (occurrence: DK)
  Receive Date: 20180712
  Receipt Date: 20180712
  Transmission Date: 20181010
  Serious: Yes (Hospitalization, Other)
  Sender: FDA-Public Use
  Company Number: DK-SA-2018SA178998

PATIENT
  Age: 28 Year
  Sex: Female

DRUGS (1)
  1. AUBAGIO [Suspect]
     Active Substance: TERIFLUNOMIDE
     Indication: MULTIPLE SCLEROSIS
     Dosage: STRENGTH: 14 MG.
     Route: 048
     Dates: start: 201609

REACTIONS (3)
  - Cervicectomy [Recovered/Resolved]
  - Cervix carcinoma [Recovered/Resolved]
  - Cervical conisation [Recovered/Resolved]

NARRATIVE: CASE EVENT DATE: 20170721
